FAERS Safety Report 7901076-7 (Version None)
Quarter: 2011Q4

REPORT INFORMATION
  Report Type: 
  Country: None (occurrence: None)
  Receive Date: 20111108
  Receipt Date: 20111101
  Transmission Date: 20120403
  Serious: Yes (Other)
  Sender: FDA-Public Use
  Company Number: US-ELI_LILLY_AND_COMPANY-US201111000418

PATIENT
  Sex: Male

DRUGS (1)
  1. EFFIENT [Suspect]
     Indication: STENT PLACEMENT
     Dosage: 10 MG, QD
     Dates: start: 20110927, end: 20111030

REACTIONS (4)
  - DRUG DOSE OMISSION [None]
  - CORONARY ARTERY STENOSIS [None]
  - PARAESTHESIA [None]
  - DRUG DISPENSING ERROR [None]
